FAERS Safety Report 12140757 (Version 1)
Quarter: 2016Q1

REPORT INFORMATION
  Report Type: Report from Study
  Country: DE (occurrence: DE)
  Receive Date: 20160303
  Receipt Date: 20160303
  Transmission Date: 20160526
  Serious: Yes (Hospitalization)
  Sender: FDA-Public Use
  Company Number: DE-HTU-2016DE011699

PATIENT
  Age: 47 Year
  Sex: Female
  Weight: 82 kg

DRUGS (6)
  1. EPIRUBICIN [Concomitant]
     Active Substance: EPIRUBICIN
     Indication: BREAST CANCER
     Dosage: UNK
     Dates: start: 20160111, end: 20160111
  2. EPIRUBICIN [Concomitant]
     Active Substance: EPIRUBICIN
     Dosage: UNK
     Dates: start: 20160202, end: 20160202
  3. AKYNZEO [Suspect]
     Active Substance: NETUPITANT\PALONOSETRON HYDROCHLORIDE
     Indication: PROPHYLAXIS OF NAUSEA AND VOMITING
     Dosage: 1 DF, QD
     Route: 048
     Dates: start: 20160111, end: 20160111
  4. CYCLOPHOSPHAMIDE. [Concomitant]
     Active Substance: CYCLOPHOSPHAMIDE
     Indication: BREAST CANCER
     Dosage: UNK
     Dates: start: 20160111, end: 20160111
  5. CYCLOPHOSPHAMIDE. [Concomitant]
     Active Substance: CYCLOPHOSPHAMIDE
     Dosage: UNK
     Dates: start: 20160202, end: 20160202
  6. AKYNZEO [Suspect]
     Active Substance: NETUPITANT\PALONOSETRON HYDROCHLORIDE
     Dosage: 1 DF, QD
     Route: 048
     Dates: start: 20160202, end: 20160202

REACTIONS (1)
  - Diarrhoea [Recovered/Resolved]

NARRATIVE: CASE EVENT DATE: 20160205
